FAERS Safety Report 12934481 (Version 1)
Quarter: 2016Q4

REPORT INFORMATION
  Report Type: Spontaneous
  Country: US (occurrence: US)
  Receive Date: 20161111
  Receipt Date: 20161111
  Transmission Date: 20170207
  Serious: Yes (Other)
  Sender: FDA-Public Use
  Company Number: US-ELI_LILLY_AND_COMPANY-US201611001746

PATIENT
  Age: 10 Year
  Sex: Male

DRUGS (1)
  1. HUMATROPE [Suspect]
     Active Substance: SOMATROPIN
     Indication: GONADOTROPHIN DEFICIENCY
     Dosage: 1.7 MG, OTHER
     Route: 065
     Dates: start: 201408

REACTIONS (1)
  - Bone cancer [Unknown]

NARRATIVE: CASE EVENT DATE: 201610
